FAERS Safety Report 9437491 (Version 3)
Quarter: 2014Q1

REPORT INFORMATION
  Report Type: Spontaneous
  Country: US (occurrence: US)
  Receive Date: 20130802
  Receipt Date: 20140123
  Transmission Date: 20141002
  Serious: Yes (Other)
  Sender: FDA-Public Use
  Company Number: US-BAYER-2013-093497

PATIENT
  Age: 30 Year
  Sex: Female
  Weight: 56.69 kg

DRUGS (1)
  1. MIRENA [Suspect]
     Indication: CONTRACEPTION
     Dosage: 20 MCG/24HR, CONT
     Route: 015
     Dates: start: 20050412, end: 20090512

REACTIONS (6)
  - Hysterectomy [None]
  - Injury [None]
  - Pain [None]
  - Abdominal pain [None]
  - Depression [None]
  - Infertility female [None]
